FAERS Safety Report 4356548-1 (Version None)
Quarter: 2004Q2

REPORT INFORMATION
  Report Type: 
  Country: None (occurrence: None)
  Receive Date: 20040512
  Receipt Date: 20040506
  Transmission Date: 20050107
  Serious: Yes (Other)
  Sender: FDA-Public Use
  Company Number: BW-BRISTOL-MYERS SQUIBB COMPANY-12582482

PATIENT
  Age: 41 Year
  Sex: Male

DRUGS (3)
  1. EFAVIRENZ [Suspect]
  2. STAVUDINE [Suspect]
  3. LAMIVUDINE [Suspect]

REACTIONS (1)
  - BLOOD TRIGLYCERIDES ABNORMAL [None]
